FAERS Safety Report 4459118-X (Version None)
Quarter: 2004Q3

REPORT INFORMATION
  Report Type: 
  Country: None (occurrence: None)
  Receive Date: 20040922
  Receipt Date: 20040922
  Transmission Date: 20050211
  Serious: Yes (Other)
  Sender: FDA-Public Use
  Company Number: None

PATIENT
  Sex: Female
  Weight: 87 kg

DRUGS (1)
  1. VANCOMYCIN [Suspect]
     Dosage: 1GM Q48

REACTIONS (1)
  - TINNITUS [None]
